FAERS Safety Report 14893043 (Version 1)
Quarter: 2018Q2

REPORT INFORMATION
  Report Type: Spontaneous
  Country: US (occurrence: US)
  Receive Date: 20180514
  Receipt Date: 20180514
  Transmission Date: 20180711
  Serious: Yes (Other)
  Sender: FDA-Public Use
  Company Number: US-SA-2018SA101934

PATIENT
  Age: 42 Year
  Sex: Male

DRUGS (2)
  1. OXALIPLATIN WINTHROP [Suspect]
     Active Substance: OXALIPLATIN
     Route: 051
  2. OXALIPLATIN WINTHROP [Suspect]
     Active Substance: OXALIPLATIN
     Route: 051
     Dates: start: 20180329, end: 20180329

REACTIONS (4)
  - Chest pain [Recovered/Resolved]
  - Dyspnoea [Recovered/Resolved]
  - Swelling face [Recovered/Resolved]
  - Anaphylactic reaction [Recovered/Resolved]
